FAERS Safety Report 8112143-X (Version None)
Quarter: 2012Q1

REPORT INFORMATION
  Report Type: 
  Country: None (occurrence: None)
  Receive Date: 20120131
  Receipt Date: 20120120
  Transmission Date: 20120608
  Serious: Yes (Hospitalization)
  Sender: FDA-Public Use
  Company Number: 2012-00073

PATIENT
  Age: 40 Year
  Sex: Female
  Weight: 61.2356 kg

DRUGS (3)
  1. HYDROMORPHONE HYDROCHLORIDE (DILAUDID) (UNKNOWN) [Concomitant]
  2. LEVETIRACETAM [Suspect]
     Indication: EPILEPSY
     Dosage: 1000 MG (500 MG, 2 IN 1 D), PER ORAL
     Route: 048
     Dates: start: 20120112, end: 20120114
  3. DIAZEPAM (VALIUM) (UNKNOWN) [Concomitant]

REACTIONS (9)
  - INSOMNIA [None]
  - DISORIENTATION [None]
  - ABDOMINAL DISTENSION [None]
  - ABDOMINAL PAIN UPPER [None]
  - VOMITING [None]
  - ANURIA [None]
  - WEIGHT INCREASED [None]
  - DIARRHOEA [None]
  - FATIGUE [None]
